FAERS Safety Report 7466561-3 (Version None)
Quarter: 2011Q1

REPORT INFORMATION
  Report Type: 
  Country: None (occurrence: None)
  Receive Date: 20110302
  Receipt Date: 20100723
  Transmission Date: 20110831
  Serious: Yes (Hospitalization, Other)
  Sender: FDA-Public Use
  Company Number: 163-21880-10062889

PATIENT
  Age: 70 Year
  Sex: Female

DRUGS (7)
  1. ASPIRIN [Concomitant]
  2. CALCIUM AND VIT D (OS-CAL) [Concomitant]
  3. SYNTHROID [Concomitant]
  4. OMEGA FISH OIL (FISH OIL) [Concomitant]
  5. POTASSIUM (POTASSIUM) [Concomitant]
  6. REVLIMID [Suspect]
     Indication: 5Q MINUS SYNDROME
     Dosage: 10 MG, 1 IN 1 D, PO
     Route: 048
     Dates: start: 20090101
  7. REVLIMID [Suspect]
     Indication: MYELODYSPLASTIC SYNDROME
     Dosage: 10 MG, 1 IN 1 D, PO
     Route: 048
     Dates: start: 20090101

REACTIONS (4)
  - COLITIS ISCHAEMIC [None]
  - FOOD POISONING [None]
  - DIARRHOEA [None]
  - HYPOTENSION [None]
